FAERS Safety Report 20667736 (Version 2)
Quarter: 2022Q2

REPORT INFORMATION
  Report Type: Spontaneous
  Country: US (occurrence: US)
  Receive Date: 20220404
  Receipt Date: 20220502
  Transmission Date: 20220721
  Serious: Yes (Other)
  Sender: FDA-Public Use
  Company Number: US-CELLTRION INC.-2022US003875

PATIENT

DRUGS (6)
  1. TRUXIMA [Suspect]
     Active Substance: RITUXIMAB-ABBS
     Indication: Autoimmune haemolytic anaemia
     Dosage: 500 MG/50 ML IV SOLUTION EVERY 9 DAYS
     Dates: start: 20220315
  2. TRUXIMA [Suspect]
     Active Substance: RITUXIMAB-ABBS
     Indication: Non-Hodgkin^s lymphoma
     Dosage: 375 PER METER SQUARED WEEKLY X 4 WEEKS
     Dates: start: 20220324
  3. NORVASC [Concomitant]
     Active Substance: AMLODIPINE BESYLATE
  4. CYANOCOBALAMIN [Concomitant]
     Active Substance: CYANOCOBALAMIN
  5. PREDNISONE [Concomitant]
     Active Substance: PREDNISONE
  6. RESTORIL [Concomitant]
     Active Substance: TEMAZEPAM

REACTIONS (4)
  - Autoimmune haemolytic anaemia [Unknown]
  - Product substitution [Unknown]
  - Insurance issue [Unknown]
  - Off label use [Unknown]

NARRATIVE: CASE EVENT DATE: 20220315
